FAERS Safety Report 20415970 (Version 1)
Quarter: 2022Q1

REPORT INFORMATION
  Report Type: Spontaneous
  Country: US (occurrence: None)
  Receive Date: 20220201
  Receipt Date: 20220201
  Transmission Date: 20220423
  Serious: No
  Sender: FDA-Public Use
  Company Number: None

PATIENT
  Age: 29 Year
  Sex: Female
  Weight: 75.6 kg

DRUGS (1)
  1. ELIQUIS [Suspect]
     Active Substance: APIXABAN
     Indication: Deep vein thrombosis
     Dosage: FREQUENCY : TWICE A DAY;?
     Route: 048
     Dates: end: 20220108

REACTIONS (10)
  - Dizziness [None]
  - Vitreous floaters [None]
  - Tinnitus [None]
  - Muscle spasms [None]
  - Ear pain [None]
  - Oropharyngeal pain [None]
  - Dysphagia [None]
  - Feeling cold [None]
  - Piloerection [None]
  - Headache [None]

NARRATIVE: CASE EVENT DATE: 20220108
